FAERS Safety Report 19667111 (Version 3)
Quarter: 2021Q4

REPORT INFORMATION
  Report Type: Report from Study
  Country: JP (occurrence: JP)
  Receive Date: 20210806
  Receipt Date: 20211129
  Transmission Date: 20220303
  Serious: Yes (Other)
  Sender: FDA-Public Use
  Company Number: JP-FERRING-EVA202101140FERRINGPH

PATIENT
  Sex: Male
  Weight: 1.641 kg

DRUGS (1)
  1. DINOPROSTONE [Suspect]
     Active Substance: DINOPROSTONE
     Indication: Induction of cervix ripening
     Dosage: UNK
     Route: 064
     Dates: start: 20210324, end: 20210324

REACTIONS (3)
  - Nonreassuring foetal heart rate pattern [Recovered/Resolved]
  - Foetal heart rate decreased [Recovered/Resolved]
  - Neonatal asphyxia [Recovering/Resolving]

NARRATIVE: CASE EVENT DATE: 20210324
